FAERS Safety Report 7249627-2 (Version None)
Quarter: 2011Q1

REPORT INFORMATION
  Report Type: 
  Country: None (occurrence: None)
  Receive Date: 20110128
  Receipt Date: 20110119
  Transmission Date: 20110831
  Serious: Yes (Other)
  Sender: FDA-Public Use
  Company Number: US-JNJFOC-20110106331

PATIENT
  Age: 11 Year
  Sex: Male

DRUGS (2)
  1. TOPIRAMATE [Suspect]
     Indication: HEADACHE
     Route: 048
  2. TOPIRAMATE [Suspect]
     Indication: PARALYSIS
     Route: 048

REACTIONS (2)
  - CONDITION AGGRAVATED [None]
  - SEDATION [None]
